FAERS Safety Report 9469685 (Version 3)
Quarter: 2015Q4

REPORT INFORMATION
  Report Type: Spontaneous
  Country: US (occurrence: US)
  Receive Date: 20130822
  Receipt Date: 20151116
  Transmission Date: 20160305
  Serious: Yes (Hospitalization)
  Sender: FDA-Public Use
  Company Number: PHHY2013US088352

PATIENT
  Age: 47 Year
  Sex: Female

DRUGS (5)
  1. CLOZAPINE. [Suspect]
     Active Substance: CLOZAPINE
     Indication: PRODUCT USED FOR UNKNOWN INDICATION
     Dosage: 100 MG, NIGHTLY
     Route: 065
  2. PROMETHAZINE [Concomitant]
     Active Substance: PROMETHAZINE\PROMETHAZINE HYDROCHLORIDE
     Indication: GASTROINTESTINAL DISORDER
     Route: 065
  3. METOCLOPRAMIDE. [Suspect]
     Active Substance: METOCLOPRAMIDE
     Indication: VOMITING
     Dosage: UNK
     Route: 065
  4. CITALOPRAM [Suspect]
     Active Substance: CITALOPRAM HYDROBROMIDE
     Indication: PRODUCT USED FOR UNKNOWN INDICATION
     Dosage: 10 MG, QD
     Route: 065
  5. ONDANSETRON [Suspect]
     Active Substance: ONDANSETRON
     Indication: VOMITING
     Route: 065

REACTIONS (12)
  - Serotonin syndrome [Recovered/Resolved]
  - Muscle spasticity [Not Recovered/Not Resolved]
  - General physical health deterioration [Unknown]
  - Coma [Recovered/Resolved]
  - Unresponsive to stimuli [Recovered/Resolved]
  - Clonus [Recovered/Resolved]
  - Mental status changes [Recovered/Resolved]
  - Hyperreflexia [Recovered/Resolved]
  - Agitation [Unknown]
  - Salivary hypersecretion [Unknown]
  - Drug withdrawal syndrome [Unknown]
  - Pain in extremity [Recovered/Resolved]
